FAERS Safety Report 12401284 (Version 1)
Quarter: 2016Q2

REPORT INFORMATION
  Report Type: Other
  Country: US (occurrence: US)
  Receive Date: 20160525
  Receipt Date: 20160525
  Transmission Date: 20160815
  Serious: Yes (Other)
  Sender: FDA-Public Use
  Company Number: US-ACORDA-ACO_124234_2016

PATIENT
  Age: 46 Year
  Sex: Female

DRUGS (1)
  1. AMPYRA [Suspect]
     Active Substance: DALFAMPRIDINE
     Indication: PRODUCT USED FOR UNKNOWN INDICATION
     Dosage: UNK
     Route: 065

REACTIONS (5)
  - Visual impairment [Unknown]
  - Multiple sclerosis [Unknown]
  - Systemic lupus erythematosus [Unknown]
  - Hypoaesthesia [Unknown]
  - Fatigue [Unknown]
